FAERS Safety Report 20376524 (Version 7)
Quarter: 2024Q4

REPORT INFORMATION
  Report Type: Report from Study
  Country: US (occurrence: US)
  Receive Date: 20220125
  Receipt Date: 20241017
  Transmission Date: 20250115
  Serious: Yes (Death, Hospitalization)
  Sender: NOVARTIS
  Company Number: US-NOVARTISTESTPH-NVSC2022US014409

PATIENT
  Sex: Male

DRUGS (1)
  1. ENTRESTO [Suspect]
     Active Substance: SACUBITRIL\VALSARTAN
     Indication: Product used for unknown indication
     Dosage: UNK
     Route: 048
     Dates: start: 202201

REACTIONS (8)
  - Death [Fatal]
  - Fluid retention [Unknown]
  - Abdominal discomfort [Unknown]
  - Gout [Unknown]
  - Weight decreased [Unknown]
  - Skin fissures [Unknown]
  - Dry skin [Unknown]
  - Hypotension [Unknown]
